FAERS Safety Report 10545376 (Version 1)
Quarter: 2014Q4

REPORT INFORMATION
  Report Type: Spontaneous
  Country: US (occurrence: US)
  Receive Date: 20141027
  Receipt Date: 20141027
  Transmission Date: 20150529
  Serious: Yes (Other)
  Sender: FDA-Public Use
  Company Number: US-ABBVIE-14P-163-1295221-00

PATIENT
  Sex: Female

DRUGS (6)
  1. BENZOL [Suspect]
     Active Substance: ALBENDAZOLE
     Indication: PARTIAL SEIZURES
     Route: 065
  2. DEPAKOTE [Suspect]
     Active Substance: DIVALPROEX SODIUM
     Indication: PARTIAL SEIZURES
     Route: 065
  3. TEGRETOL [Suspect]
     Active Substance: CARBAMAZEPINE
     Indication: PARTIAL SEIZURES
     Route: 065
  4. TRILEPTAL [Suspect]
     Active Substance: OXCARBAZEPINE
     Indication: PARTIAL SEIZURES
     Route: 065
  5. BENZEL [Suspect]
     Active Substance: CHLORPHENIRAMINE MALEATE
     Indication: PARTIAL SEIZURES
     Route: 065
  6. KEPPRA [Suspect]
     Active Substance: LEVETIRACETAM
     Indication: PARTIAL SEIZURES
     Route: 065

REACTIONS (2)
  - Drug ineffective [Unknown]
  - Brain operation [Unknown]
